FAERS Safety Report 23140529 (Version 2)
Quarter: 2024Q1

REPORT INFORMATION
  Report Type: Report from Study
  Country: US (occurrence: US)
  Receive Date: 20231102
  Receipt Date: 20240126
  Transmission Date: 20240410
  Serious: Yes (Other)
  Sender: FDA-Public Use
  Company Number: US-JNJFOC-20231066453

PATIENT
  Age: 77 Year
  Sex: Male

DRUGS (8)
  1. APALUTAMIDE [Suspect]
     Active Substance: APALUTAMIDE
     Indication: Product used for unknown indication
     Route: 048
     Dates: start: 202209, end: 202306
  2. LISINOPRIL [Concomitant]
     Active Substance: LISINOPRIL
     Indication: Cardiac disorder
     Route: 065
     Dates: start: 2002
  3. CRESTOR [Concomitant]
     Active Substance: ROSUVASTATIN CALCIUM
     Indication: Cardiac disorder
     Dates: start: 2002
  4. PLAVIX [Concomitant]
     Active Substance: CLOPIDOGREL BISULFATE
     Indication: Cardiac disorder
     Dates: start: 2002
  5. LEXAPRO [Concomitant]
     Active Substance: ESCITALOPRAM OXALATE
     Indication: Cardiac disorder
     Dates: start: 2002
  6. ERGOCALCIFEROL [Concomitant]
     Active Substance: ERGOCALCIFEROL
     Dates: start: 2022
  7. CALCIUM GLUCONATE [Concomitant]
     Active Substance: CALCIUM GLUCONATE
     Dates: start: 2022
  8. VITAMINS NOS [Concomitant]
     Active Substance: VITAMINS
     Dates: start: 2022

REACTIONS (9)
  - Mental impairment [Unknown]
  - Urticaria [Unknown]
  - Diarrhoea [Unknown]
  - Muscular weakness [Unknown]
  - Rash [Unknown]
  - Skin irritation [Unknown]
  - Wound [Unknown]
  - Hot flush [Unknown]
  - Fatigue [Unknown]
